FAERS Safety Report 8065697-6 (Version None)
Quarter: 2012Q1

REPORT INFORMATION
  Report Type: 
  Country: None (occurrence: None)
  Receive Date: 20120124
  Receipt Date: 20120119
  Transmission Date: 20120608
  Serious: Yes (Other)
  Sender: FDA-Public Use
  Company Number: JP-PFIZER INC-2012015915

PATIENT
  Age: 65 Year
  Sex: Female

DRUGS (3)
  1. ZOLOFT [Suspect]
     Indication: DEPRESSION
     Dosage: 25MG DAILY
     Route: 048
  2. ZOLOFT [Suspect]
     Dosage: 100MG DAILY
     Route: 048
     Dates: start: 20111101
  3. ZOLOFT [Suspect]
     Dosage: 75MG DAILY
     Route: 048

REACTIONS (3)
  - ELECTROCARDIOGRAM QT PROLONGED [None]
  - MENTAL DISORDER [None]
  - TREMOR [None]
